FAERS Safety Report 5748521-3 (Version None)
Quarter: 2008Q2

REPORT INFORMATION
  Report Type: 
  Country: None (occurrence: None)
  Receive Date: 20080523
  Receipt Date: 20080514
  Transmission Date: 20081010
  Serious: Yes (Other)
  Sender: FDA-Public Use
  Company Number: US-PFIZER INC-2008041997

PATIENT
  Sex: Female
  Weight: 62.6 kg

DRUGS (6)
  1. CELEBREX [Suspect]
     Indication: PAIN
  2. CELEBREX [Suspect]
     Indication: HERPES ZOSTER
  3. LYRICA [Concomitant]
  4. TRILEPTAL [Concomitant]
  5. HYDROCHLOROTHIAZIDE [Concomitant]
  6. ZANAFLEX [Concomitant]

REACTIONS (10)
  - BLOOD COUNT ABNORMAL [None]
  - BURNING SENSATION [None]
  - DYSPNOEA [None]
  - FEELING ABNORMAL [None]
  - LABILE BLOOD PRESSURE [None]
  - LIVER FUNCTION TEST ABNORMAL [None]
  - NERVE BLOCK [None]
  - PALPITATIONS [None]
  - STRESS [None]
  - SURGERY [None]
